FAERS Safety Report 9455669 (Version 1)
Quarter: 2013Q3

REPORT INFORMATION
  Report Type: Report from Study
  Country: DE (occurrence: DE)
  Receive Date: 20130813
  Receipt Date: 20130813
  Transmission Date: 20140515
  Serious: Yes (Hospitalization)
  Sender: FDA-Public Use
  Company Number: DE-JNJFOC-20130612111

PATIENT
  Age: 40 Year
  Sex: Male
  Weight: 87 kg

DRUGS (2)
  1. SIMPONI [Suspect]
     Indication: ANKYLOSING SPONDYLITIS
     Route: 058
     Dates: start: 20110503
  2. PREDNISOLONE [Concomitant]
     Indication: ANKYLOSING SPONDYLITIS
     Dates: start: 2005

REACTIONS (1)
  - Gastrointestinal stromal tumour [Recovered/Resolved]
